FAERS Safety Report 23154562 (Version 2)
Quarter: 2023Q4

REPORT INFORMATION
  Report Type: Report from Study
  Country: CA (occurrence: None)
  Receive Date: 20231107
  Receipt Date: 20231109
  Transmission Date: 20240110
  Serious: Yes (Hospitalization)
  Sender: FDA-Public Use
  Company Number: 2023A251434

PATIENT
  Age: 77 Year
  Sex: Female

DRUGS (2)
  1. CALQUENCE [Suspect]
     Active Substance: ACALABRUTINIB
     Indication: Chronic lymphocytic leukaemia
     Route: 048
     Dates: start: 20211006
  2. EFUDEX [Concomitant]
     Active Substance: FLUOROURACIL

REACTIONS (3)
  - Gastritis [Unknown]
  - Faeces discoloured [Unknown]
  - Pain [Unknown]

NARRATIVE: CASE EVENT DATE: 20230101
